FAERS Safety Report 25104417 (Version 3)
Quarter: 2025Q2

REPORT INFORMATION
  Report Type: Spontaneous
  Country: CO (occurrence: CO)
  Receive Date: 20250321
  Receipt Date: 20250409
  Transmission Date: 20250717
  Serious: Yes (Life-Threatening, Other)
  Sender: SANDOZ
  Company Number: CO-002147023-NVSC2024CO173521

PATIENT
  Sex: Male
  Weight: 82 kg

DRUGS (34)
  1. AMLODIPINE [Suspect]
     Active Substance: AMLODIPINE BESYLATE
     Dosage: 10 MG, QD
     Route: 048
  2. AMLODIPINE [Suspect]
     Active Substance: AMLODIPINE BESYLATE
     Indication: Product used for unknown indication
     Dosage: UNK, Q12H
     Route: 065
  3. ATORVASTATIN [Suspect]
     Active Substance: ATORVASTATIN
     Indication: Product used for unknown indication
     Route: 065
  4. DABIGATRAN [Suspect]
     Active Substance: DABIGATRAN
     Indication: Atrial fibrillation
     Dosage: 150 MG, Q12H
     Route: 065
  5. EZETIMIBE\ROSUVASTATIN [Suspect]
     Active Substance: EZETIMIBE\ROSUVASTATIN
     Indication: Product used for unknown indication
     Route: 048
  6. METFORMIN [Suspect]
     Active Substance: METFORMIN HYDROCHLORIDE
     Indication: Product used for unknown indication
     Route: 065
  7. ELTROMBOPAG OLAMINE [Suspect]
     Active Substance: ELTROMBOPAG OLAMINE
     Indication: Immune thrombocytopenia
     Dosage: 25 MG, QD
     Route: 048
     Dates: start: 20240518, end: 20240823
  8. ELTROMBOPAG OLAMINE [Suspect]
     Active Substance: ELTROMBOPAG OLAMINE
     Dosage: 25 MG, Q24H
     Route: 048
     Dates: start: 20240430
  9. ELTROMBOPAG OLAMINE [Suspect]
     Active Substance: ELTROMBOPAG OLAMINE
     Dosage: 50 MG, QD
     Route: 048
     Dates: end: 20240904
  10. ELTROMBOPAG OLAMINE [Suspect]
     Active Substance: ELTROMBOPAG OLAMINE
     Dosage: 50 MG, QD
     Route: 048
     Dates: end: 20241016
  11. ELTROMBOPAG OLAMINE [Suspect]
     Active Substance: ELTROMBOPAG OLAMINE
     Route: 065
     Dates: start: 20240708
  12. SITAGLIPTIN [Suspect]
     Active Substance: SITAGLIPTIN
     Indication: Product used for unknown indication
     Route: 065
  13. VALSARTAN [Suspect]
     Active Substance: VALSARTAN
     Dosage: 80 MG, QD
     Route: 048
  14. VALSARTAN [Suspect]
     Active Substance: VALSARTAN
     Indication: Product used for unknown indication
     Route: 065
  15. ASPIRIN [Concomitant]
     Active Substance: ASPIRIN
     Indication: Product used for unknown indication
     Dosage: 100 MG, Q12H
     Route: 065
  16. APIXABAN [Concomitant]
     Active Substance: APIXABAN
     Route: 065
     Dates: start: 20240521
  17. APIXABAN [Concomitant]
     Active Substance: APIXABAN
     Dosage: 5 MG, Q2H
     Route: 048
  18. APIXABAN [Concomitant]
     Active Substance: APIXABAN
     Indication: Product used for unknown indication
     Route: 065
  19. DAPAGLIFLOZIN PROPANEDIOL\METFORMIN HYDROCHLORIDE [Concomitant]
     Active Substance: DAPAGLIFLOZIN PROPANEDIOL\METFORMIN HYDROCHLORIDE
     Indication: Product used for unknown indication
     Route: 065
  20. EMPAGLIFLOZIN\METFORMIN HYDROCHLORIDE [Concomitant]
     Active Substance: EMPAGLIFLOZIN\METFORMIN HYDROCHLORIDE
     Indication: Product used for unknown indication
     Dosage: UNK, Q12H
     Route: 065
  21. LACTULOSE [Concomitant]
     Active Substance: LACTULOSE
     Indication: Product used for unknown indication
     Dosage: 1 DOSAGE FORM (1 SACHET), Q12H
     Route: 048
  22. METOPROLOL SUCCINATE [Concomitant]
     Active Substance: METOPROLOL SUCCINATE
     Indication: Product used for unknown indication
     Dosage: 200 MG, QD
     Route: 048
  23. OMEPRAZOLE [Concomitant]
     Active Substance: OMEPRAZOLE
     Indication: Product used for unknown indication
     Dosage: 20 MG, QD
     Route: 048
  24. PREDNISONE [Concomitant]
     Active Substance: PREDNISONE
     Dosage: 10 MG, QD
     Route: 048
     Dates: start: 20240530, end: 20240603
  25. PREDNISONE [Concomitant]
     Active Substance: PREDNISONE
     Dosage: 15 MG, QD
     Route: 065
     Dates: start: 20240525, end: 20240529
  26. PREDNISONE [Concomitant]
     Active Substance: PREDNISONE
     Dosage: 20 MG, QD 4/5, CURRENT
     Route: 048
     Dates: start: 20240520, end: 20240524
  27. PREDNISONE [Concomitant]
     Active Substance: PREDNISONE
     Dosage: 35 MG, QD,35 MG, QD DAY 5/5
     Route: 048
     Dates: start: 20240510
  28. PREDNISONE [Concomitant]
     Active Substance: PREDNISONE
     Dosage: 35 MG, QD,35 MG, QD DAY 5/5
     Route: 048
     Dates: start: 20240515, end: 20240519
  29. PREDNISONE [Concomitant]
     Active Substance: PREDNISONE
     Dosage: 45 MG, QD DAY 5/5
     Route: 048
     Dates: start: 20240505
  30. PREDNISONE [Concomitant]
     Active Substance: PREDNISONE
     Dosage: 5 MG, QD
     Route: 048
     Dates: start: 20240604
  31. PREDNISONE [Concomitant]
     Active Substance: PREDNISONE
     Dosage: 5500 MG, QD
     Route: 048
     Dates: start: 20240420
  32. PREDNISONE [Concomitant]
     Active Substance: PREDNISONE
     Indication: Product used for unknown indication
     Dosage: 60 MG, QD, 60 MG (0.75MG/KG), QD
     Route: 048
     Dates: start: 20240406, end: 20240419
  33. SPIRONOLACTONE [Concomitant]
     Active Substance: SPIRONOLACTONE
     Indication: Product used for unknown indication
     Dosage: 25 MG, QD
     Route: 048
  34. TESTOSTERONE [Concomitant]
     Active Substance: TESTOSTERONE
     Indication: Product used for unknown indication
     Route: 065
     Dates: start: 202402

REACTIONS (17)
  - Platelet count increased [Unknown]
  - Blood calcium abnormal [Unknown]
  - Cerebral atrophy [Unknown]
  - Weight decreased [Unknown]
  - Blood bilirubin abnormal [Unknown]
  - Hip deformity [Unknown]
  - International normalised ratio abnormal [Unknown]
  - Haemoglobin abnormal [Unknown]
  - Bilirubin conjugated abnormal [Unknown]
  - Haematocrit abnormal [Unknown]
  - Blood urea increased [Unknown]
  - Neutrophil count abnormal [Unknown]
  - Haematuria [Recovered/Resolved]
  - Alanine aminotransferase abnormal [Unknown]
  - Anaemia [Recovered/Resolved]
  - White blood cell disorder [Unknown]
  - Bone density decreased [Unknown]
